FAERS Safety Report 23688639 (Version 3)
Quarter: 2025Q1

REPORT INFORMATION
  Report Type: Spontaneous
  Country: US (occurrence: US)
  Receive Date: 20240329
  Receipt Date: 20250106
  Transmission Date: 20250409
  Serious: Yes (Other)
  Sender: PFIZER
  Company Number: US-PFIZER INC-PV202400041681

PATIENT
  Age: 79 Year
  Sex: Female
  Weight: 61.224 kg

DRUGS (2)
  1. IBRANCE [Suspect]
     Active Substance: PALBOCICLIB
     Indication: Breast cancer metastatic
     Route: 048
     Dates: start: 20240408
  2. FASLODEX [Concomitant]
     Active Substance: FULVESTRANT
     Dates: start: 20240408

REACTIONS (1)
  - Cytopenia [Unknown]
